FAERS Safety Report 24624234 (Version 1)
Quarter: 2024Q4

REPORT INFORMATION
  Report Type: Spontaneous
  Country: US (occurrence: None)
  Receive Date: 20241115
  Receipt Date: 20241115
  Transmission Date: 20250115
  Serious: Yes (Hospitalization)
  Sender: Public
  Company Number: None

PATIENT
  Sex: Male
  Weight: 102 kg

DRUGS (2)
  1. CARBOPLATIN [Suspect]
     Active Substance: CARBOPLATIN
  2. TAXOL [Suspect]
     Active Substance: PACLITAXEL

REACTIONS (11)
  - Lung infiltration [None]
  - Febrile neutropenia [None]
  - Pneumonia [None]
  - Tachycardia [None]
  - Diarrhoea [None]
  - Hyponatraemia [None]
  - Blood creatinine increased [None]
  - Anaemia [None]
  - Hypocalcaemia [None]
  - Thrombocytopenia [None]
  - Acute kidney injury [None]

NARRATIVE: CASE EVENT DATE: 20241108
